FAERS Safety Report 23473442 (Version 1)
Quarter: 2024Q1

REPORT INFORMATION
  Report Type: Spontaneous
  Country: PL (occurrence: PL)
  Receive Date: 20240203
  Receipt Date: 20240203
  Transmission Date: 20240410
  Serious: Yes (Hospitalization, Other)
  Sender: FDA-Public Use
  Company Number: None

PATIENT
  Age: 5 Year
  Sex: Male

DRUGS (2)
  1. IBUPROFEN [Suspect]
     Active Substance: IBUPROFEN
     Indication: Varicella
     Dosage: 5 MILLIGRAM/KILOGRAM, EVERY 8 HRS (5 MG/KG IN 3 DOSES DAILY FOR 3 DAYS)
     Route: 065
  2. ACYCLOVIR [Concomitant]
     Active Substance: ACYCLOVIR
     Indication: Varicella
     Dosage: UNK
     Route: 042

REACTIONS (5)
  - Deep vein thrombosis [Not Recovered/Not Resolved]
  - Soft tissue infection [Not Recovered/Not Resolved]
  - Superinfection bacterial [Recovered/Resolved]
  - Streptococcal sepsis [Recovered/Resolved]
  - Off label use [Unknown]
